FAERS Safety Report 15425312 (Version 1)
Quarter: 2018Q3

REPORT INFORMATION
  Report Type: Spontaneous
  Country: US (occurrence: US)
  Receive Date: 20180925
  Receipt Date: 20180925
  Transmission Date: 20181010
  Serious: Yes (Hospitalization)
  Sender: FDA-Public Use
  Company Number: US-SILVERGATE PHARMACEUTICALS, INC.-2018SIL00050

PATIENT
  Age: 74 Year
  Sex: Male

DRUGS (1)
  1. METHOTREXATE. [Suspect]
     Active Substance: METHOTREXATE
     Indication: PSORIATIC ARTHROPATHY
     Route: 065

REACTIONS (5)
  - Central nervous system lesion [Recovered/Resolved]
  - Actinomycotic pulmonary infection [Recovered/Resolved]
  - Actinomycosis [Recovered/Resolved]
  - Fall [Recovered/Resolved]
  - Abscess neck [Recovered/Resolved]
